FAERS Safety Report 14769508 (Version 2)
Quarter: 2019Q3

REPORT INFORMATION
  Report Type: Spontaneous
  Country: US (occurrence: US)
  Receive Date: 20180417
  Receipt Date: 20190816
  Transmission Date: 20191004
  Serious: Yes (Other)
  Sender: FDA-Public Use
  Company Number: US-ASTRAZENECA-2018SE45849

PATIENT
  Sex: Female
  Weight: 68 kg

DRUGS (38)
  1. ACIPHEX [Suspect]
     Active Substance: RABEPRAZOLE SODIUM
     Indication: GASTROOESOPHAGEAL REFLUX DISEASE
     Route: 065
     Dates: start: 2008, end: 2010
  2. AZITHROMYCIN ANHYDROUS. [Concomitant]
     Active Substance: AZITHROMYCIN ANHYDROUS
     Dates: start: 2006
  3. AMITRIPTYLINE [Concomitant]
     Active Substance: AMITRIPTYLINE
     Dates: start: 2006
  4. CLONAZEPAM. [Concomitant]
     Active Substance: CLONAZEPAM
  5. PROTONIX [Suspect]
     Active Substance: PANTOPRAZOLE SODIUM
     Indication: GASTROOESOPHAGEAL REFLUX DISEASE
     Route: 065
     Dates: start: 2005, end: 2007
  6. NEXIUM [Suspect]
     Active Substance: ESOMEPRAZOLE MAGNESIUM
     Indication: GASTROOESOPHAGEAL REFLUX DISEASE
     Route: 048
     Dates: start: 2004, end: 2016
  7. NEXIUM [Suspect]
     Active Substance: ESOMEPRAZOLE MAGNESIUM
     Indication: GASTROOESOPHAGEAL REFLUX DISEASE
     Route: 048
     Dates: start: 2004, end: 2018
  8. LEVAQUIN [Concomitant]
     Active Substance: LEVOFLOXACIN
     Dates: start: 2007
  9. FUROSEMIDE. [Concomitant]
     Active Substance: FUROSEMIDE
     Dates: start: 2011, end: 2015
  10. NYSTATIN. [Concomitant]
     Active Substance: NYSTATIN
     Dates: start: 2015
  11. ESTRADIOL. [Concomitant]
     Active Substance: ESTRADIOL
  12. LIOTHYRONINE [Concomitant]
     Active Substance: LIOTHYRONINE
  13. CITALOPRAM [Concomitant]
     Active Substance: CITALOPRAM HYDROBROMIDE
  14. SYNTHROID [Concomitant]
     Active Substance: LEVOTHYROXINE SODIUM
  15. SEROQUEL [Concomitant]
     Active Substance: QUETIAPINE FUMARATE
  16. NEXIUM [Suspect]
     Active Substance: ESOMEPRAZOLE MAGNESIUM
     Indication: GASTROOESOPHAGEAL REFLUX DISEASE
     Route: 048
     Dates: start: 20080514
  17. RANITIDINE. [Concomitant]
     Active Substance: RANITIDINE
  18. TRAMADOL. [Concomitant]
     Active Substance: TRAMADOL
     Dates: start: 2006, end: 2008
  19. AVELOX [Concomitant]
     Active Substance: MOXIFLOXACIN HYDROCHLORIDE
     Dates: start: 2002
  20. CELEBREX [Concomitant]
     Active Substance: CELECOXIB
     Dates: start: 2010
  21. NEXIUM [Suspect]
     Active Substance: ESOMEPRAZOLE MAGNESIUM
     Indication: GASTROOESOPHAGEAL REFLUX DISEASE
     Dosage: GENERIC
     Route: 065
     Dates: start: 2015
  22. NEXIUM [Suspect]
     Active Substance: ESOMEPRAZOLE MAGNESIUM
     Indication: ULCER
     Route: 048
     Dates: start: 20080514
  23. TYLENOL [Concomitant]
     Active Substance: ACETAMINOPHEN
     Indication: PAIN
  24. ADVIL [Concomitant]
     Active Substance: IBUPROFEN
     Indication: PYREXIA
  25. CIPROFLOXACIN. [Concomitant]
     Active Substance: CIPROFLOXACIN
     Dates: start: 2007, end: 2008
  26. LAMOTRIGINE. [Concomitant]
     Active Substance: LAMOTRIGINE
  27. GABAPENTIN. [Concomitant]
     Active Substance: GABAPENTIN
  28. NEXIUM [Suspect]
     Active Substance: ESOMEPRAZOLE MAGNESIUM
     Indication: ULCER
     Dosage: GENERIC
     Route: 065
     Dates: start: 2015
  29. TYLENOL [Concomitant]
     Active Substance: ACETAMINOPHEN
     Indication: HEADACHE
  30. ADVIL [Concomitant]
     Active Substance: IBUPROFEN
     Indication: MYALGIA
  31. DONEPEZIL. [Concomitant]
     Active Substance: DONEPEZIL
  32. NEXIUM [Suspect]
     Active Substance: ESOMEPRAZOLE MAGNESIUM
     Indication: ULCER
     Route: 048
     Dates: start: 2004, end: 2016
  33. MILK OF MAANESIA [Concomitant]
     Dates: start: 2015
  34. NEXIUM [Suspect]
     Active Substance: ESOMEPRAZOLE MAGNESIUM
     Indication: ULCER
     Route: 048
     Dates: start: 2004, end: 2018
  35. TYLENOL [Concomitant]
     Active Substance: ACETAMINOPHEN
     Indication: PYREXIA
  36. IRON [Concomitant]
     Active Substance: IRON
     Indication: ANAEMIA
  37. ERYTHROMYCIN. [Concomitant]
     Active Substance: ERYTHROMYCIN
  38. IBUPROFEN. [Concomitant]
     Active Substance: IBUPROFEN

REACTIONS (1)
  - Chronic kidney disease [Not Recovered/Not Resolved]
